FAERS Safety Report 8368052-4 (Version None)
Quarter: 2012Q2

REPORT INFORMATION
  Report Type: 
  Country: None (occurrence: None)
  Receive Date: 20120516
  Receipt Date: 20120430
  Transmission Date: 20120825
  Serious: Yes (Other)
  Sender: FDA-Public Use
  Company Number: INT_00071_2012

PATIENT
  Sex: Male

DRUGS (1)
  1. CEFTRIAXONE [Suspect]
     Indication: MENINGITIS BACTERIAL
     Dosage: (DF)

REACTIONS (2)
  - URINE CALCIUM INCREASED [None]
  - MENINGITIS BACTERIAL [None]
